FAERS Safety Report 13666969 (Version 1)
Quarter: 2017Q2

REPORT INFORMATION
  Report Type: Spontaneous
  Country: US (occurrence: US)
  Receive Date: 20170619
  Receipt Date: 20170619
  Transmission Date: 20170830
  Serious: No
  Sender: FDA-Public Use
  Company Number: US-ROCHE-1353516

PATIENT
  Age: 61 Year
  Sex: Female

DRUGS (1)
  1. XELODA [Suspect]
     Active Substance: CAPECITABINE
     Indication: PRODUCT USED FOR UNKNOWN INDICATION
     Dosage: 3 TABS, 7 DAYS ON AND 7 DAYS OFF
     Route: 011
     Dates: start: 20140130

REACTIONS (2)
  - Skin ulcer [Not Recovered/Not Resolved]
  - Tongue biting [Not Recovered/Not Resolved]

NARRATIVE: CASE EVENT DATE: 20140218
